FAERS Safety Report 9423811 (Version 3)
Quarter: 2013Q3

REPORT INFORMATION
  Report Type: Spontaneous
  Country: BE (occurrence: BE)
  Receive Date: 20130729
  Receipt Date: 20130925
  Transmission Date: 20140515
  Serious: Yes (Hospitalization)
  Sender: FDA-Public Use
  Company Number: BE-009507513-1211BEL004167

PATIENT
  Age: 69 Year
  Sex: Female

DRUGS (19)
  1. PEGINTRON [Suspect]
     Indication: HEPATITIS C
     Dosage: 100 MICROGRAM, QW
     Dates: start: 20121015, end: 20130920
  2. REBETOL [Suspect]
     Indication: HEPATITIS C
     Dosage: BID, 1000 MG DAILY
     Route: 048
     Dates: start: 20121015, end: 20121111
  3. REBETOL [Suspect]
     Dosage: BID, 800MG DAILY
     Route: 048
     Dates: start: 20121112, end: 20121219
  4. REBETOL [Suspect]
     Dosage: BID, 400MG DAILY
     Route: 048
     Dates: start: 20121220, end: 20130131
  5. REBETOL [Suspect]
     Dosage: BID, 600MG DAILY
     Route: 048
     Dates: start: 20130201, end: 2013
  6. REBETOL [Suspect]
     Dosage: BID, 400MG DAILY
     Route: 048
     Dates: start: 2013, end: 20130715
  7. REBETOL [Suspect]
     Dosage: BID, 200MG DAILY
     Route: 048
     Dates: start: 20130716, end: 20130719
  8. REBETOL [Suspect]
     Dosage: BID, 400MG DAILY, 1 TAB IN THE MORNING AND 1 TAB IN THE EVENING
     Route: 048
     Dates: start: 20130720, end: 20130807
  9. REBETOL [Suspect]
     Dosage: INCREASED TO 600 MG
     Route: 048
     Dates: start: 20130808, end: 20130920
  10. VICTRELIS [Suspect]
     Indication: HEPATITIS C
     Dosage: TID, 2400 MG DAILY
     Route: 048
     Dates: start: 20121112, end: 20130716
  11. ZANIDIP [Concomitant]
     Dosage: UNK
     Dates: end: 201210
  12. OMEPRAZOLE [Concomitant]
     Dosage: 20 MG, UNK
  13. OMEPRAZOLE [Concomitant]
     Dosage: 40 MG, UNK
  14. OMEPRAZOLE [Concomitant]
     Dosage: 20 MG, UNK
  15. BOIRON BIOPTIMUM SENIOR VITALITY [Concomitant]
     Dosage: UNK
     Dates: end: 2012
  16. EMCORETIC [Concomitant]
  17. HUMALOG MIX [Concomitant]
  18. INSULIN [Concomitant]
     Dosage: 6 IU, EVENING DOSE
     Dates: end: 20130412
  19. INSULIN [Concomitant]
     Dosage: 4 IU, EVENING DOSE
     Dates: start: 20130412

REACTIONS (17)
  - Urinary tract infection [Not Recovered/Not Resolved]
  - Oesophagitis [Recovered/Resolved]
  - Peptic ulcer [Recovered/Resolved]
  - Presyncope [Unknown]
  - Blood pressure decreased [Not Recovered/Not Resolved]
  - Local swelling [Unknown]
  - Arthralgia [Unknown]
  - Tendonitis [Unknown]
  - Local swelling [Unknown]
  - Haemoglobin decreased [Unknown]
  - Haemoglobin decreased [Not Recovered/Not Resolved]
  - Fatigue [Recovering/Resolving]
  - Dehydration [Unknown]
  - Vertigo [Recovering/Resolving]
  - Cystitis [Unknown]
  - Poor quality sleep [Unknown]
  - Pain in extremity [Unknown]
